FAERS Safety Report 8368266-3 (Version None)
Quarter: 2012Q2

REPORT INFORMATION
  Report Type: 
  Country: None (occurrence: None)
  Receive Date: 20120517
  Receipt Date: 20120514
  Transmission Date: 20120825
  Serious: Yes (Other)
  Sender: FDA-Public Use
  Company Number: US-AMGEN-USASP2012030441

PATIENT
  Sex: Female

DRUGS (4)
  1. NEULASTA [Suspect]
     Indication: NEUTROPENIA
     Dates: start: 20030101
  2. CARBOPLATIN [Concomitant]
     Indication: BREAST CANCER
  3. TAXOTERE [Concomitant]
     Indication: BREAST CANCER
  4. TRASTUZUMAB [Concomitant]
     Indication: BREAST CANCER

REACTIONS (9)
  - INFLUENZA LIKE ILLNESS [None]
  - DIZZINESS [None]
  - BACK PAIN [None]
  - VOMITING [None]
  - NAUSEA [None]
  - FEELING ABNORMAL [None]
  - STOMATITIS [None]
  - BREAST CANCER RECURRENT [None]
  - ARTHRALGIA [None]
